FAERS Safety Report 4391443-3 (Version None)
Quarter: 2004Q3

REPORT INFORMATION
  Report Type: 
  Country: None (occurrence: None)
  Receive Date: 20040707
  Receipt Date: 20040615
  Transmission Date: 20050211
  Serious: Yes (Hospitalization, Disabling)
  Sender: FDA-Public Use
  Company Number: JP-GLAXOSMITHKLINE-B0335816A

PATIENT
  Age: 70 Year
  Sex: Male
  Weight: 55 kg

DRUGS (11)
  1. VALTREX [Suspect]
     Indication: HERPES ZOSTER
     Dosage: 1000MG PER DAY
     Route: 048
     Dates: start: 20040611, end: 20040612
  2. LOCHOL [Concomitant]
     Indication: HYPERLIPIDAEMIA
     Dosage: 20MG PER DAY
     Route: 048
     Dates: end: 20040612
  3. ALLOPURINOL TAB [Concomitant]
     Indication: HYPERURICAEMIA
     Dosage: 100MG PER DAY
     Route: 048
     Dates: end: 20040612
  4. BAYASPIRIN [Concomitant]
     Indication: THROMBOTIC STROKE
     Dosage: 50MG PER DAY
     Route: 048
     Dates: end: 20040612
  5. NU-LOTAN [Concomitant]
     Indication: HYPERTENSION
     Dosage: 50MG PER DAY
     Route: 048
     Dates: end: 20040612
  6. NORVASC [Concomitant]
     Indication: HYPERTENSION
     Dosage: 5MG PER DAY
     Route: 048
     Dates: end: 20040612
  7. CALTAN [Concomitant]
     Indication: HYPERPARATHYROIDISM
     Route: 048
     Dates: end: 20040612
  8. TAVEGYL [Concomitant]
     Indication: RHINITIS ALLERGIC
     Dosage: 2MG PER DAY
     Route: 048
     Dates: end: 20040612
  9. GASMOTIN [Concomitant]
     Indication: GASTRITIS
     Dosage: 15MG PER DAY
     Route: 048
     Dates: end: 20040612
  10. GASTER D [Concomitant]
     Indication: GASTRITIS
     Dosage: 20MG PER DAY
     Route: 048
  11. NITRODERM [Concomitant]
     Indication: ANGINA PECTORIS
     Dosage: 1U PER DAY
     Route: 062
     Dates: end: 20040612

REACTIONS (12)
  - APHASIA [None]
  - BLOOD PRESSURE DECREASED [None]
  - CRYING [None]
  - DEPRESSED LEVEL OF CONSCIOUSNESS [None]
  - DISORIENTATION [None]
  - GAIT DISTURBANCE [None]
  - GLOSSOPTOSIS [None]
  - HAEMODIALYSIS [None]
  - MENINGITIS [None]
  - SPEECH DISORDER [None]
  - TONGUE PARALYSIS [None]
  - VISION BLURRED [None]
